FAERS Safety Report 13912083 (Version 1)
Quarter: 2017Q3

REPORT INFORMATION
  Report Type: Spontaneous
  Country: US (occurrence: US)
  Receive Date: 20170828
  Receipt Date: 20170828
  Transmission Date: 20171127
  Serious: No
  Sender: FDA-Public Use
  Company Number: US-ROCHE-GNE100305

PATIENT
  Age: 49 Year
  Sex: Female
  Weight: 59.02 kg

DRUGS (3)
  1. NUTROPIN AQ [Suspect]
     Active Substance: SOMATROPIN
     Indication: GROWTH HORMONE DEFICIENCY
     Route: 058
     Dates: start: 20011010, end: 20011015
  2. NUTROPIN AQ [Suspect]
     Active Substance: SOMATROPIN
     Route: 058
     Dates: start: 20011016, end: 20011024
  3. NUTROPIN AQ [Suspect]
     Active Substance: SOMATROPIN
     Route: 058

REACTIONS (11)
  - Muscle spasms [Unknown]
  - Arthralgia [Recovered/Resolved]
  - Swelling [Unknown]
  - Asthenia [Unknown]
  - Pain [Unknown]
  - Oedema [Recovered/Resolved]
  - Hypoaesthesia [Unknown]
  - Overdose [Recovered/Resolved]
  - Oedema [Unknown]
  - Abdominal distension [Recovered/Resolved]
  - Carpal tunnel syndrome [Unknown]

NARRATIVE: CASE EVENT DATE: 20011016
